FAERS Safety Report 9058314 (Version 1)
Quarter: 2012Q4

REPORT INFORMATION
  Report Type: Report from Study
  Country: US (occurrence: US)
  Receive Date: 20121001
  Receipt Date: 20121001
  Transmission Date: 20130627
  Serious: Yes (Other)
  Sender: FDA-Public Use
  Company Number: US-RB-022657-09

PATIENT
  Age: 26 None
  Sex: Female

DRUGS (2)
  1. SUBOXONE [Suspect]
     Indication: PRODUCT USED FOR UNKNOWN INDICATION
     Dosage: Dosing information unknown
     Route: 065
     Dates: start: 2009
  2. SUBUTEX [Suspect]
     Indication: PRODUCT USED FOR UNKNOWN INDICATION
     Dosage: Dosing information unknown
     Route: 065
     Dates: start: 2009, end: 20090403

REACTIONS (4)
  - Exposure during pregnancy [Recovered/Resolved]
  - Insomnia [Not Recovered/Not Resolved]
  - Pre-eclampsia [Recovered/Resolved]
  - Premature delivery [Recovered/Resolved]
